FAERS Safety Report 5302167-X (Version None)
Quarter: 2007Q2

REPORT INFORMATION
  Report Type: 
  Country: None (occurrence: None)
  Receive Date: 20070419
  Receipt Date: 20070406
  Transmission Date: 20071010
  Serious: Yes (Other)
  Sender: FDA-Public Use
  Company Number: US-PFIZER INC-2007026780

PATIENT
  Sex: Male
  Weight: 77.1 kg

DRUGS (1)
  1. CHANTIX [Suspect]
     Indication: EX-SMOKER
     Dates: start: 20070301, end: 20070301

REACTIONS (2)
  - HYDRONEPHROSIS [None]
  - MUSCULOSKELETAL PAIN [None]
